FAERS Safety Report 8400220-5 (Version None)
Quarter: 2012Q2

REPORT INFORMATION
  Report Type: 
  Country: None (occurrence: None)
  Receive Date: 20120525
  Receipt Date: 20120509
  Transmission Date: 20120825
  Serious: Yes (Death, Other)
  Sender: FDA-Public Use
  Company Number: OPIR20120027

PATIENT
  Age: 35 Year
  Sex: Male
  Weight: 79.3795 kg

DRUGS (2)
  1. ALCOHOL (ETHANOL) [Suspect]
     Indication: DRUG ABUSE
  2. OPANA [Suspect]
     Indication: DRUG DIVERSION
     Dosage: ORAL
     Route: 048

REACTIONS (10)
  - UNRESPONSIVE TO STIMULI [None]
  - DRUG ABUSE [None]
  - ACCIDENTAL OVERDOSE [None]
  - DRUG DIVERSION [None]
  - TOXICITY TO VARIOUS AGENTS [None]
  - PULMONARY OEDEMA [None]
  - DRUG INTERACTION [None]
  - ALCOHOL POISONING [None]
  - PULMONARY CONGESTION [None]
  - ACCIDENTAL DEATH [None]
